FAERS Safety Report 9240864 (Version 1)
Quarter: 2013Q1

REPORT INFORMATION
  Report Type: Spontaneous
  Country: US (occurrence: None)
  Receive Date: 20121120
  Receipt Date: 20121120
  Transmission Date: 20140127
  Serious: No
  Sender: FDA-Public Use
  Company Number: 1000037515

PATIENT
  Age: 45 Year
  Sex: Male

DRUGS (6)
  1. VIIBRYD [Suspect]
     Indication: DEPRESSION
     Dosage: 10 MG (10 MG, 1 IN 1 D, ORAL
     Dates: start: 20120727, end: 20120801
  2. KLONOPIN [Concomitant]
  3. LEVOTHYROXINE (LEVOTHYROXINE SODIUM) (LEVOTHRYOXINE SODIUM) [Concomitant]
  4. VISTARIL (HYDROXYZINE) (HYDROXYZINE) [Concomitant]
  5. MULTIVITIMAIN (MULTIVITAMIN) (MULTIVITAMIN) [Concomitant]
  6. FISH OIL (FISH OIL) (FISH OIL) [Concomitant]

REACTIONS (8)
  - Somnolence [None]
  - Dizziness [None]
  - Diarrhoea [None]
  - Asthenia [None]
  - Irritability [None]
  - Confusional state [None]
  - Amnesia [None]
  - Infrequent bowel movements [None]
